FAERS Safety Report 8071257-3 (Version None)
Quarter: 2012Q1

REPORT INFORMATION
  Report Type: 
  Country: None (occurrence: None)
  Receive Date: 20120125
  Receipt Date: 20120119
  Transmission Date: 20120608
  Serious: Yes (Hospitalization)
  Sender: FDA-Public Use
  Company Number: DE-PFIZER INC-2009176720

PATIENT
  Age: 54 Year
  Sex: Male
  Weight: 78 kg

DRUGS (12)
  1. HYDROCHLOROTHIAZIDE [Suspect]
     Indication: HYPERTENSION
     Dosage: 25 MG, 1X/DAY
     Route: 048
     Dates: start: 20080301, end: 20080821
  2. PANTOPRAZOLE [Concomitant]
     Indication: PROPHYLAXIS AGAINST GASTROINTESTINAL ULCER
     Dosage: 40 MG, 1X/DAY
     Route: 048
     Dates: start: 20070401
  3. BEROTEC [Concomitant]
     Indication: CHRONIC OBSTRUCTIVE PULMONARY DISEASE
     Dosage: 100 UG, UNK
     Route: 055
  4. NEURONTIN [Concomitant]
     Indication: POLYNEUROPATHY ALCOHOLIC
     Dosage: 600 MG, 3X/DAY
     Route: 048
  5. FALITHROM ^HEXAL^ [Interacting]
     Indication: PULMONARY EMBOLISM
     Dosage: 3 MG, 1X/DAY
     Route: 048
  6. BISOPROLOL FUMARATE [Suspect]
     Indication: CORONARY ARTERY DISEASE
     Dosage: 5 MG, 2X/DAY
     Route: 048
     Dates: start: 19900101
  7. PRAMIPEXOLE DIHYDROCHLORIDE [Concomitant]
     Indication: POLYNEUROPATHY ALCOHOLIC
     Dosage: 0.18 MG, 1X/DAY
     Route: 048
  8. RAMIPRIL [Suspect]
     Indication: HYPERTENSION
     Dosage: 5 MG, 1X/DAY
     Route: 048
     Dates: start: 19900101
  9. PREGABALIN [Concomitant]
     Indication: POLYNEUROPATHY ALCOHOLIC
     Dosage: 50 MG, 3X/DAY
     Route: 048
  10. SPIRIVA [Concomitant]
     Indication: CHRONIC OBSTRUCTIVE PULMONARY DISEASE
     Dosage: 18 UG, 1X/DAY
     Route: 055
  11. FUROSEMIDE [Interacting]
     Indication: RENAL IMPAIRMENT
     Dosage: 40 MG, 1X/DAY
     Route: 048
     Dates: start: 20080301, end: 20080821
  12. SIMVASTATIN [Concomitant]
     Indication: CORONARY ARTERY DISEASE
     Dosage: 20 MG, SINGLE
     Route: 048
     Dates: start: 19900101

REACTIONS (2)
  - DEHYDRATION [None]
  - INTERNATIONAL NORMALISED RATIO INCREASED [None]
